FAERS Safety Report 7152033-2 (Version None)
Quarter: 2010Q4

REPORT INFORMATION
  Report Type: 
  Country: None (occurrence: None)
  Receive Date: 20101109
  Receipt Date: 20101109
  Transmission Date: 20110411
  Serious: Yes (Hospitalization)
  Sender: FDA-Public Use
  Company Number: None

PATIENT
  Sex: Male
  Weight: 61.6892 kg

DRUGS (1)
  1. ZEMPLAR [Suspect]
     Indication: NEOPLASM MALIGNANT
     Dosage: 1 MCG QD PO
     Route: 048
     Dates: start: 20100602, end: 20100615

REACTIONS (4)
  - DEHYDRATION [None]
  - PNEUMONIA [None]
  - SYNCOPE [None]
  - TACHYCARDIA [None]
